FAERS Safety Report 6177808-8 (Version None)
Quarter: 2009Q2

REPORT INFORMATION
  Report Type: 
  Country: None (occurrence: None)
  Receive Date: 20090501
  Receipt Date: 20090501
  Transmission Date: 20091009
  Serious: No
  Sender: FDA-Public Use
  Company Number: None

PATIENT
  Age: 59 Year
  Sex: Male

DRUGS (2)
  1. IOPROMIDE [Suspect]
     Indication: CARDIOVASCULAR DISORDER
     Dosage: 120 ML ONCE IV
     Route: 042
     Dates: start: 20090212, end: 20090212
  2. IOPROMIDE [Suspect]
     Indication: SURGERY
     Dosage: 120 ML ONCE IV
     Route: 042
     Dates: start: 20090212, end: 20090212

REACTIONS (3)
  - BLOOD PRESSURE SYSTOLIC INCREASED [None]
  - RASH [None]
  - URTICARIA [None]
